FAERS Safety Report 12633471 (Version 1)
Quarter: 2016Q3

REPORT INFORMATION
  Report Type: Spontaneous
  Country: RU (occurrence: RU)
  Receive Date: 20160809
  Receipt Date: 20160809
  Transmission Date: 20161109
  Serious: Yes (Life-Threatening)
  Sender: FDA-Public Use
  Company Number: RU-BAYER-2016-153713

PATIENT
  Age: 71 Year
  Sex: Female

DRUGS (1)
  1. ASPIRIN CARDIO [Suspect]
     Active Substance: ASPIRIN
     Route: 048

REACTIONS (1)
  - Ulcer haemorrhage [Not Recovered/Not Resolved]
